FAERS Safety Report 7759847-6 (Version None)
Quarter: 2011Q3

REPORT INFORMATION
  Report Type: 
  Country: None (occurrence: None)
  Receive Date: 20110919
  Receipt Date: 20110908
  Transmission Date: 20111222
  Serious: Yes (Other)
  Sender: FDA-Public Use
  Company Number: CA-JNJFOC-20110701993

PATIENT
  Sex: Female
  Weight: 101.4 kg

DRUGS (6)
  1. REMICADE [Suspect]
     Indication: CROHN'S DISEASE
     Route: 042
     Dates: start: 20081203
  2. PANTOPRAZOLE [Concomitant]
     Route: 065
  3. OXYCONTIN [Concomitant]
     Route: 065
  4. PERCOCET [Concomitant]
     Route: 065
  5. REMICADE [Suspect]
     Dosage: 5 MG/KG BODYWEIGHT
     Route: 042
     Dates: start: 20080101
  6. REMICADE [Suspect]
     Route: 042
     Dates: start: 20110519

REACTIONS (2)
  - CYSTOSCOPY [None]
  - VOMITING [None]
